FAERS Safety Report 10467359 (Version 2)
Quarter: 2014Q4

REPORT INFORMATION
  Report Type: Spontaneous
  Country: US (occurrence: US)
  Receive Date: 20140922
  Receipt Date: 20141009
  Transmission Date: 20150528
  Serious: Yes (Death, Other)
  Sender: FDA-Public Use
  Company Number: US-PFIZER INC-2014261195

PATIENT
  Age: 33 Year
  Sex: Female

DRUGS (1)
  1. LYRICA [Suspect]
     Active Substance: PREGABALIN
     Dosage: UNK

REACTIONS (4)
  - Somnolence [Unknown]
  - Overdose [Fatal]
  - Coma [Unknown]
  - Completed suicide [Fatal]
